FAERS Safety Report 18067537 (Version 1)
Quarter: 2020Q3

REPORT INFORMATION
  Report Type: Spontaneous
  Country: NL (occurrence: NL)
  Receive Date: 20200724
  Receipt Date: 20200724
  Transmission Date: 20201103
  Serious: Yes (Congenital Anomaly)
  Sender: FDA-Public Use
  Company Number: NL-MEDEXUS PHARMA, INC.-2020MED00205

PATIENT
  Age: 1 Day
  Sex: Female
  Weight: 1.49 kg

DRUGS (3)
  1. MISOPROSTOL. [Suspect]
     Active Substance: MISOPROSTOL
     Dosage: 200 ?G (^X2^)
     Route: 048
  2. MISOPROSTOL. [Suspect]
     Active Substance: MISOPROSTOL
     Dosage: 200 ?G (^X3^)
     Route: 067
  3. METHOTREXATE. [Suspect]
     Active Substance: METHOTREXATE
     Dosage: 1 MG/KG, ONCE (MATERNAL DOSE)
     Route: 064

REACTIONS (11)
  - Foetal exposure during pregnancy [Recovered/Resolved]
  - Oral fibroma [Recovered/Resolved]
  - Foetal methotrexate syndrome [Not Recovered/Not Resolved]
  - Brachycephaly [Not Recovered/Not Resolved]
  - Brachydactyly [Not Recovered/Not Resolved]
  - Dysmorphism [Not Recovered/Not Resolved]
  - Syndactyly [Unknown]
  - Ectrodactyly [Not Recovered/Not Resolved]
  - Ventricular septal defect [Unknown]
  - Microcephaly [Not Recovered/Not Resolved]
  - Atrial septal defect [Unknown]
